FAERS Safety Report 15067192 (Version 3)
Quarter: 2018Q3

REPORT INFORMATION
  Report Type: Report from Study
  Country: US (occurrence: US)
  Receive Date: 20180626
  Receipt Date: 20180821
  Transmission Date: 20181010
  Serious: Yes (Other)
  Sender: FDA-Public Use
  Company Number: US-PFIZER INC-2018189361

PATIENT
  Age: 44 Year
  Sex: Female

DRUGS (4)
  1. IBRANCE [Suspect]
     Active Substance: PALBOCICLIB
     Indication: BREAST CANCER
     Dosage: 125 MG, DAILY
     Route: 048
     Dates: start: 20180502, end: 20180515
  2. IBRANCE [Suspect]
     Active Substance: PALBOCICLIB
     Dosage: 100 MG, CYCLIC (21 DAYS ON, 7 DAYS OFF)
     Route: 048
     Dates: start: 201805
  3. IBRANCE [Suspect]
     Active Substance: PALBOCICLIB
     Dosage: 100 MG, ALTERNATE DAY(EVERY OTHER DAY)
     Route: 048
     Dates: start: 20180712
  4. IBRANCE [Suspect]
     Active Substance: PALBOCICLIB
     Dosage: 100 MG, DAILY
     Route: 048
     Dates: start: 20180531, end: 20180620

REACTIONS (7)
  - Abdominal discomfort [Unknown]
  - Lower respiratory tract infection [Unknown]
  - Bone marrow failure [Unknown]
  - Constipation [Unknown]
  - Fatigue [Unknown]
  - Leukopenia [Recovering/Resolving]
  - Mucosal inflammation [Unknown]

NARRATIVE: CASE EVENT DATE: 2018
